FAERS Safety Report 4498946-1 (Version None)
Quarter: 2004Q4

REPORT INFORMATION
  Report Type: 
  Country: None (occurrence: None)
  Receive Date: 20041108
  Receipt Date: 20041026
  Transmission Date: 20050328
  Serious: Yes (Death, Hospitalization, Other)
  Sender: FDA-Public Use
  Company Number: 2004237677FR

PATIENT
  Age: 83 Year
  Sex: Male

DRUGS (1)
  1. SOMAVERT (PEGVISOMAT) POWDER, STERILE [Suspect]
     Indication: ACROMEGALY
     Dates: start: 20040701, end: 20041001

REACTIONS (2)
  - CEREBROVASCULAR ACCIDENT [None]
  - SUDDEN CARDIAC DEATH [None]
